FAERS Safety Report 25783433 (Version 1)
Quarter: 2025Q3

REPORT INFORMATION
  Report Type: Other
  Country: CN (occurrence: CN)
  Receive Date: 20250910
  Receipt Date: 20250910
  Transmission Date: 20251020
  Serious: Yes (Hospitalization)
  Sender: QILU PHARMACEUTICAL
  Company Number: CN-QILU PHARMACEUTICAL CO.LTD.-QLU-000226-2025

PATIENT
  Age: 51 Year
  Sex: Male
  Weight: 57.5 kg

DRUGS (4)
  1. TENOFOVIR DISOPROXIL FUMARATE [Suspect]
     Active Substance: TENOFOVIR DISOPROXIL FUMARATE
     Indication: Acquired immunodeficiency syndrome
     Dosage: 300 MG DAILY
     Route: 048
     Dates: start: 20250728, end: 20250817
  2. EFAVIRENZ [Suspect]
     Active Substance: EFAVIRENZ
     Indication: Acquired immunodeficiency syndrome
     Dosage: 400 MG DAILY
     Route: 048
     Dates: start: 20250728, end: 20250817
  3. LAMIVUDINE [Suspect]
     Active Substance: LAMIVUDINE
     Indication: Acquired immunodeficiency syndrome
     Dosage: 300 MG DAILY
     Route: 048
     Dates: start: 20250728, end: 20250817
  4. SULFAMETHOXAZOLE [Suspect]
     Active Substance: SULFAMETHOXAZOLE
     Indication: Pneumocystis jirovecii pneumonia
     Route: 048
     Dates: start: 20250806, end: 20250815

REACTIONS (1)
  - White blood cell count decreased [Unknown]

NARRATIVE: CASE EVENT DATE: 20250812
